FAERS Safety Report 8387013-2 (Version None)
Quarter: 2012Q2

REPORT INFORMATION
  Report Type: 
  Country: None (occurrence: None)
  Receive Date: 20120525
  Receipt Date: 20120523
  Transmission Date: 20120825
  Serious: Yes (Disabling)
  Sender: FDA-Public Use
  Company Number: US-PFIZER INC-2012125638

PATIENT
  Sex: Female
  Weight: 70.295 kg

DRUGS (6)
  1. ZIPRASIDONE HCL [Suspect]
     Indication: MENTAL DISORDER
     Dosage: 20 MG, DAILY
     Route: 048
     Dates: start: 20120501, end: 20120513
  2. SPIRONOLACTONE [Concomitant]
     Indication: ACNE CYSTIC
     Dosage: 25 MG, 3X/DAY
  3. NORTRIPTYLINE HCL [Suspect]
     Indication: IRRITABILITY
  4. NORTRIPTYLINE HCL [Suspect]
     Indication: DEPRESSION
     Dosage: 10 MG, 3X/DAY
     Dates: end: 20120101
  5. NORTRIPTYLINE HCL [Suspect]
     Indication: ANXIETY
     Dosage: 10 MG, 3X/DAY
     Dates: start: 20120501
  6. NORTRIPTYLINE HCL [Suspect]
     Indication: OBSESSIVE-COMPULSIVE DISORDER

REACTIONS (9)
  - DISTURBANCE IN ATTENTION [None]
  - DYSPEPSIA [None]
  - THERAPEUTIC RESPONSE UNEXPECTED [None]
  - WRONG TECHNIQUE IN DRUG USAGE PROCESS [None]
  - NERVOUSNESS [None]
  - IRRITABILITY [None]
  - DRUG INEFFECTIVE [None]
  - SLEEP DISORDER [None]
  - CONSTIPATION [None]
